FAERS Safety Report 5607349-5 (Version None)
Quarter: 2008Q1

REPORT INFORMATION
  Report Type: 
  Country: None (occurrence: None)
  Receive Date: 20080128
  Receipt Date: 20080128
  Transmission Date: 20080703
  Serious: Yes (Other)
  Sender: FDA-Public Use
  Company Number: None

PATIENT
  Age: 58 Year
  Sex: Female
  Weight: 74.8435 kg

DRUGS (1)
  1. ZETIA [Suspect]
     Indication: BLOOD CHOLESTEROL INCREASED
     Dosage: ONE EACH DAY PO
     Route: 048
     Dates: start: 20071120, end: 20071215

REACTIONS (3)
  - PRURITUS [None]
  - RASH [None]
  - URTICARIA [None]
